FAERS Safety Report 6896848-4 (Version None)
Quarter: 2010Q3

REPORT INFORMATION
  Report Type: 
  Country: None (occurrence: None)
  Receive Date: 20100802
  Receipt Date: 20070213
  Transmission Date: 20110219
  Serious: No
  Sender: FDA-Public Use
  Company Number: US-PFIZER INC-2007012144

PATIENT
  Sex: Male

DRUGS (7)
  1. LYRICA [Suspect]
     Indication: NEURALGIA
     Dosage: 75MG IN AM; 150MG IN PM
  2. HYDROCHLOROTHIAZIDE [Concomitant]
  3. LORAZEPAM [Concomitant]
     Dosage: AT NIGHT
  4. DICYCLOMINE [Concomitant]
  5. METOPROLOL [Concomitant]
  6. DIAZEPAM [Concomitant]
  7. TIMOLOL MALEATE [Concomitant]

REACTIONS (2)
  - DRUG INEFFECTIVE [None]
  - SOMNOLENCE [None]
